FAERS Safety Report 9717926 (Version 4)
Quarter: 2014Q1

REPORT INFORMATION
  Report Type: Spontaneous
  Country: JP (occurrence: JP)
  Receive Date: 20131127
  Receipt Date: 20140117
  Transmission Date: 20141002
  Serious: Yes (Life-Threatening, Hospitalization, Other)
  Sender: FDA-Public Use
  Company Number: JP-PFIZER INC-2013304050

PATIENT
  Age: 78 Year
  Sex: Male
  Weight: 62 kg

DRUGS (3)
  1. INLYTA [Suspect]
     Indication: RENAL CANCER METASTATIC
     Dosage: UNK
     Route: 048
     Dates: start: 20121120, end: 20130218
  2. NEXAVAR [Concomitant]
     Indication: RENAL CANCER METASTATIC
     Dosage: 400 MG, 1X/DAY
     Route: 048
     Dates: start: 20110307, end: 20121118
  3. NORVASC [Concomitant]
     Dosage: UNK

REACTIONS (2)
  - Acute myocardial infarction [Recovering/Resolving]
  - Interstitial lung disease [Recovering/Resolving]
